FAERS Safety Report 13387113 (Version 1)
Quarter: 2017Q1

REPORT INFORMATION
  Report Type: Spontaneous
  Country: US (occurrence: US)
  Receive Date: 20170330
  Receipt Date: 20170330
  Transmission Date: 20170429
  Serious: No
  Sender: FDA-Public Use
  Company Number: US-BAYER-2017-060402

PATIENT
  Sex: Female

DRUGS (1)
  1. CIPRO [Suspect]
     Active Substance: CIPROFLOXACIN HYDROCHLORIDE
     Indication: LOCALISED INFECTION
     Dosage: 500 MG, QD
     Route: 048
     Dates: start: 2017

REACTIONS (3)
  - Formication [None]
  - Pruritus [None]
  - Blister [None]
